FAERS Safety Report 9012962 (Version 1)
Quarter: 2013Q1

REPORT INFORMATION
  Report Type: Spontaneous
  Country: JP (occurrence: JP)
  Receive Date: 20130114
  Receipt Date: 20130114
  Transmission Date: 20140127
  Serious: Yes (Hospitalization)
  Sender: FDA-Public Use
  Company Number: JP-GLAXOSMITHKLINE-B0858139A

PATIENT
  Sex: 0

DRUGS (2)
  1. SEREVENT DISKUS [Suspect]
     Indication: PRODUCT USED FOR UNKNOWN INDICATION
     Dosage: 50MCG TWICE PER DAY
     Route: 055
  2. UNKNOWN DRUG [Concomitant]
     Route: 065

REACTIONS (1)
  - Interstitial lung disease [Unknown]
